FAERS Safety Report 6327200-8 (Version None)
Quarter: 2009Q3

REPORT INFORMATION
  Report Type: 
  Country: None (occurrence: None)
  Receive Date: 20090825
  Receipt Date: 20090819
  Transmission Date: 20100115
  Serious: Yes (Other)
  Sender: FDA-Public Use
  Company Number: US-AVENTIS-200916759US

PATIENT
  Sex: Female
  Weight: 88.45 kg

DRUGS (5)
  1. LANTUS [Suspect]
     Route: 058
     Dates: start: 20060701
  2. LANTUS [Suspect]
     Route: 058
  3. OPTICLIK (INSULIN INJECTION PEN) [Suspect]
     Dates: start: 20060701
  4. GLUCOPHAGE [Concomitant]
     Indication: TYPE 2 DIABETES MELLITUS
     Dates: start: 19960101
  5. AMOXICILLIN + CLAVULANATE POTASSIUM [Concomitant]
     Dates: start: 20090701

REACTIONS (5)
  - ANIMAL BITE [None]
  - BLOOD GLUCOSE INCREASED [None]
  - CYST [None]
  - DEMENTIA ALZHEIMER'S TYPE [None]
  - SECRETION DISCHARGE [None]
